FAERS Safety Report 7495102-X (Version None)
Quarter: 2011Q2

REPORT INFORMATION
  Report Type: 
  Country: None (occurrence: None)
  Receive Date: 20110520
  Receipt Date: 20110511
  Transmission Date: 20111010
  Serious: Yes (Other)
  Sender: FDA-Public Use
  Company Number: ES-ELI_LILLY_AND_COMPANY-ES201105002795

PATIENT
  Age: 81 Year
  Sex: Female

DRUGS (6)
  1. FORTEO [Suspect]
     Indication: SPINAL FRACTURE
     Dosage: 20 UG, QD
     Route: 058
     Dates: start: 20101001, end: 20110416
  2. TRAMADOL HCL [Concomitant]
     Dosage: 50 MG, TID
     Route: 048
  3. IBUPROFENO [Concomitant]
     Route: 048
  4. MANIDON [Concomitant]
     Dosage: 120 MG, QD
     Route: 048
  5. LISINOPRIL [Concomitant]
     Dosage: 20 MG, QD
     Route: 048
  6. ACETAMINOPHEN [Concomitant]
     Dosage: 1 G, TID
     Route: 048

REACTIONS (6)
  - OFF LABEL USE [None]
  - HYPOAESTHESIA [None]
  - VOMITING [None]
  - MUSCULAR WEAKNESS [None]
  - MUSCLE SPASMS [None]
  - NAUSEA [None]
